FAERS Safety Report 24783840 (Version 1)
Quarter: 2024Q4

REPORT INFORMATION
  Report Type: Spontaneous
  Country: FR (occurrence: FR)
  Receive Date: 20241227
  Receipt Date: 20241227
  Transmission Date: 20250114
  Serious: Yes (Hospitalization)
  Sender: MYLAN
  Company Number: None

PATIENT
  Age: 34 Year
  Sex: Female
  Weight: 68 kg

DRUGS (12)
  1. CEFAZOLIN [Suspect]
     Active Substance: CEFAZOLIN
     Indication: Antibiotic prophylaxis
     Dosage: 2000 MILLIGRAM
     Route: 042
     Dates: start: 20241203, end: 20241203
  2. CIMETIDINE [Suspect]
     Active Substance: CIMETIDINE
     Indication: Postpartum haemorrhage
     Dosage: 400 MILLIGRAM
     Route: 048
     Dates: start: 20241203, end: 20241203
  3. TRANEXAMIC ACID [Suspect]
     Active Substance: TRANEXAMIC ACID
     Indication: Postpartum haemorrhage
     Dosage: 1000 MILLIGRAM
     Route: 042
     Dates: start: 20241203, end: 20241203
  4. CLOTTAFACT [Suspect]
     Active Substance: FIBRINOGEN HUMAN
     Indication: Postpartum haemorrhage
     Dosage: 4500 MILLIGRAM
     Route: 042
     Dates: start: 20241203, end: 20241203
  5. CARBETOCIN [Suspect]
     Active Substance: CARBETOCIN
     Indication: Haemorrhage prophylaxis
     Dosage: 100 MICROGRAM
     Route: 042
     Dates: start: 20241203, end: 20241203
  6. KETOPROFEN [Suspect]
     Active Substance: KETOPROFEN
     Indication: Pain
     Dosage: 100 MILLIGRAM
     Route: 042
     Dates: start: 20241203, end: 20241203
  7. ACETAMINOPHEN [Suspect]
     Active Substance: ACETAMINOPHEN
     Indication: Pain
     Dosage: 1000 MILLIGRAM
     Route: 042
     Dates: start: 20241203
  8. NOREPINEPHRINE [Suspect]
     Active Substance: NOREPINEPHRINE\NOREPINEPHRINE BITARTRATE
     Indication: Shock haemorrhagic
     Dosage: 230 MICROGRAM
     Route: 042
     Dates: start: 20241203, end: 20241203
  9. SULPROSTONE [Suspect]
     Active Substance: SULPROSTONE
     Indication: Postpartum haemorrhage
     Dosage: 835 MICROGRAM
     Route: 042
     Dates: start: 20241203, end: 20241203
  10. DROPERIDOL [Suspect]
     Active Substance: DROPERIDOL
     Indication: Procedural nausea
     Dosage: 625 MICROGRAM
     Route: 042
     Dates: start: 20241203, end: 20241203
  11. LIDOCAINE HYDROCHLORIDE [Suspect]
     Active Substance: LIDOCAINE HYDROCHLORIDE
     Indication: Epidural anaesthesia
     Dosage: 2 MILLIGRAM
     Route: 008
     Dates: start: 20241203, end: 20241203
  12. MORPHINE [Suspect]
     Active Substance: MORPHINE
     Indication: Epidural anaesthesia
     Dosage: 200 MILLIGRAM
     Route: 008
     Dates: start: 20241203, end: 20241203

REACTIONS (1)
  - Renal cortical necrosis [Not Recovered/Not Resolved]

NARRATIVE: CASE EVENT DATE: 20241204
